FAERS Safety Report 5693114-X (Version None)
Quarter: 2008Q2

REPORT INFORMATION
  Report Type: 
  Country: None (occurrence: None)
  Receive Date: 20080402
  Receipt Date: 20080402
  Transmission Date: 20081010
  Serious: Yes (Life-Threatening, Hospitalization)
  Sender: FDA-Public Use
  Company Number: None

PATIENT
  Age: 2 Year
  Sex: Female
  Weight: 12.7007 kg

DRUGS (3)
  1. PULMICORT [Suspect]
     Indication: COUGH
     Dosage: NEBULIZER TREATMENTS
     Dates: start: 20070421, end: 20070421
  2. PULMICORT [Suspect]
     Indication: NASOPHARYNGITIS
     Dosage: NEBULIZER TREATMENTS
     Dates: start: 20070421, end: 20070421
  3. PULMICORT [Suspect]
     Indication: WHEEZING
     Dosage: NEBULIZER TREATMENTS
     Dates: start: 20070421, end: 20070421

REACTIONS (1)
  - ANAPHYLACTIC SHOCK [None]
